FAERS Safety Report 21581096 (Version 2)
Quarter: 2022Q4

REPORT INFORMATION
  Report Type: Report from Study
  Country: US (occurrence: US)
  Receive Date: 20221111
  Receipt Date: 20221114
  Transmission Date: 20230113
  Serious: No
  Sender: FDA-Public Use
  Company Number: US-ABBVIE-4140226

PATIENT
  Age: 66 Year
  Sex: Female
  Weight: 81.65 kg

DRUGS (9)
  1. HUMIRA [Suspect]
     Active Substance: ADALIMUMAB
     Indication: Rheumatoid arthritis
     Dosage: STRENGTH: 40 MILLIGRAM
     Route: 058
     Dates: start: 2019
  2. PFIZER-BIONTECH COVID-19 VACCINE [Concomitant]
     Active Substance: TOZINAMERAN
     Indication: COVID-19 immunisation
     Dosage: ONCE - 1ST DOSE
     Route: 030
     Dates: start: 20210211, end: 20210211
  3. PFIZER-BIONTECH COVID-19 VACCINE [Concomitant]
     Active Substance: TOZINAMERAN
     Indication: COVID-19 immunisation
     Dosage: ONCE - 2ND DOSE
     Route: 030
     Dates: start: 20210324, end: 20210324
  4. PFIZER-BIONTECH COVID-19 VACCINE [Concomitant]
     Active Substance: TOZINAMERAN
     Indication: COVID-19 immunisation
     Dosage: ONCE - 3RD DOSE
     Route: 030
     Dates: start: 20211019, end: 20211019
  5. MAGNESIUM [Concomitant]
     Active Substance: MAGNESIUM
     Indication: Product used for unknown indication
     Route: 065
  6. ASPIRIN [Concomitant]
     Active Substance: ASPIRIN
     Indication: Product used for unknown indication
     Route: 065
  7. METOPROLOL [Concomitant]
     Active Substance: METOPROLOL
     Indication: Product used for unknown indication
     Route: 065
  8. POTASSIUM [Concomitant]
     Active Substance: POTASSIUM
     Indication: Product used for unknown indication
     Route: 065
  9. Bomex (Brompheniramine maleate) [Concomitant]
     Indication: Product used for unknown indication
     Route: 065

REACTIONS (9)
  - Sinusitis [Recovering/Resolving]
  - Immunodeficiency [Recovering/Resolving]
  - Pharyngeal disorder [Recovering/Resolving]
  - Illness [Recovering/Resolving]
  - Bronchitis [Recovering/Resolving]
  - Malaise [Recovering/Resolving]
  - Nasal congestion [Recovering/Resolving]
  - Fatigue [Recovering/Resolving]
  - Infection [Unknown]

NARRATIVE: CASE EVENT DATE: 20220928
